FAERS Safety Report 7600498-1 (Version None)
Quarter: 2011Q3

REPORT INFORMATION
  Report Type: 
  Country: None (occurrence: None)
  Receive Date: 20110711
  Receipt Date: 20110706
  Transmission Date: 20111222
  Serious: Yes (Hospitalization)
  Sender: FDA-Public Use
  Company Number: US-SANOFI-AVENTIS-2011SA043033

PATIENT
  Age: 75 Year
  Sex: Female

DRUGS (1)
  1. RILUTEK [Suspect]
     Route: 048
     Dates: start: 20101101

REACTIONS (1)
  - ILL-DEFINED DISORDER [None]
